FAERS Safety Report 7039453-1 (Version None)
Quarter: 2010Q4

REPORT INFORMATION
  Report Type: 
  Country: None (occurrence: None)
  Receive Date: 20101012
  Receipt Date: 20100930
  Transmission Date: 20110411
  Serious: Yes (Disabling)
  Sender: FDA-Public Use
  Company Number: NL-ROCHE-730589

PATIENT
  Age: 56 Year
  Sex: Male

DRUGS (2)
  1. XELODA [Suspect]
     Route: 048
     Dates: start: 20100922
  2. OXALIPLATIN [Suspect]
     Route: 042
     Dates: start: 20100922

REACTIONS (3)
  - ASTHENOPIA [None]
  - EYE PAIN [None]
  - LACRIMATION INCREASED [None]
